FAERS Safety Report 22522388 (Version 1)
Quarter: 2023Q2

REPORT INFORMATION
  Report Type: Report from Study
  Country: EG (occurrence: EG)
  Receive Date: 20230605
  Receipt Date: 20230605
  Transmission Date: 20230722
  Serious: Yes (Hospitalization, Other)
  Sender: FDA-Public Use
  Company Number: EG-002147023-NVSC2023EG125006

PATIENT
  Age: 53 Year
  Sex: Male

DRUGS (8)
  1. ENTRESTO [Suspect]
     Active Substance: SACUBITRIL\VALSARTAN
     Indication: Cardiac failure
     Dosage: 1 DOSAGE FORM, QD (50 MG)
     Route: 048
     Dates: start: 20211108, end: 202210
  2. ENTRESTO [Suspect]
     Active Substance: SACUBITRIL\VALSARTAN
     Dosage: 1 DOSAGE FORM, QD (100 MG)
     Route: 048
     Dates: start: 202210, end: 202211
  3. ENTRESTO [Suspect]
     Active Substance: SACUBITRIL\VALSARTAN
     Dosage: 1 DOSAGE FORM, BID (100 MG)
     Route: 048
     Dates: start: 202211
  4. PLAVIX [Concomitant]
     Active Substance: CLOPIDOGREL BISULFATE
     Indication: Product used for unknown indication
     Dosage: UNK UNK, QD (ANTICOAGULANT)
     Route: 048
     Dates: start: 2018
  5. DAPAGLIFLOZIN [Concomitant]
     Active Substance: DAPAGLIFLOZIN
     Indication: Cardiac failure
     Dosage: UNK UNK, QD
     Route: 048
     Dates: start: 2018
  6. CORDARONE [Concomitant]
     Active Substance: AMIODARONE HYDROCHLORIDE
     Indication: Cardiac pacemaker insertion
     Dosage: 200 MG, QD
     Route: 065
     Dates: start: 2021
  7. SPECTONE [Concomitant]
     Indication: Cardiac failure
     Dosage: 100 MG, QD
     Route: 065
     Dates: start: 2018
  8. METOPROLOL SUCCINATE [Concomitant]
     Active Substance: METOPROLOL SUCCINATE
     Indication: Cardiac failure
     Dosage: 25 MG, QD
     Route: 048
     Dates: start: 2018

REACTIONS (5)
  - Pulmonary oedema [Recovering/Resolving]
  - Pericardial effusion [Not Recovered/Not Resolved]
  - Ejection fraction decreased [Unknown]
  - Prescribed underdose [Recovered/Resolved]
  - Inappropriate schedule of product administration [Recovered/Resolved]

NARRATIVE: CASE EVENT DATE: 20211108
